FAERS Safety Report 13312295 (Version 1)
Quarter: 2017Q1

REPORT INFORMATION
  Report Type: Spontaneous
  Country: US (occurrence: US)
  Receive Date: 20170309
  Receipt Date: 20170309
  Transmission Date: 20170428
  Serious: No
  Sender: FDA-Public Use
  Company Number: US-ASTELLAS-2017US006107

PATIENT
  Sex: Male

DRUGS (1)
  1. CRESEMBA [Suspect]
     Active Substance: ISAVUCONAZONIUM SULFATE
     Indication: PNEUMONIA
     Dosage: 372 MG (TWO 186 MILLIGRAM CAPSULES), UNKNOWN FREQ.
     Route: 048

REACTIONS (1)
  - Off label use [Not Recovered/Not Resolved]
